FAERS Safety Report 22624926 (Version 1)
Quarter: 2023Q2

REPORT INFORMATION
  Report Type: Spontaneous
  Country: US (occurrence: None)
  Receive Date: 20230616
  Receipt Date: 20230616
  Transmission Date: 20230721
  Serious: Yes (Hospitalization)
  Sender: FDA-Public Use
  Company Number: None

PATIENT
  Age: 67 Year
  Sex: Male

DRUGS (1)
  1. SUNITINIB [Suspect]
     Active Substance: SUNITINIB
     Dosage: 37.5MG DAILY ORAL
     Route: 048

REACTIONS (3)
  - Sepsis [None]
  - Diarrhoea [None]
  - Therapy interrupted [None]

NARRATIVE: CASE EVENT DATE: 20230616
